FAERS Safety Report 18721444 (Version 2)
Quarter: 2021Q1

REPORT INFORMATION
  Report Type: Spontaneous
  Country: US (occurrence: US)
  Receive Date: 20210110
  Receipt Date: 20210319
  Transmission Date: 20210419
  Serious: Yes (Life-Threatening, Hospitalization)
  Sender: FDA-Public Use
  Company Number: US-TEVA-2020-US-1865164

PATIENT
  Age: 49 Year
  Sex: Male

DRUGS (7)
  1. ADALIMUMAB [Suspect]
     Active Substance: ADALIMUMAB
     Indication: RHEUMATOID ARTHRITIS
     Route: 065
  2. ADALIMUMAB [Suspect]
     Active Substance: ADALIMUMAB
     Dosage: SCHEDULED FOR 4 WEEKS
     Route: 065
  3. DIPHENHYDRAMINE. [Suspect]
     Active Substance: DIPHENHYDRAMINE
     Indication: ANGIOEDEMA
     Route: 042
  4. PREDNISONE. [Suspect]
     Active Substance: PREDNISONE
     Indication: ANGIOEDEMA
     Dosage: 40 MILLIGRAM DAILY;
     Route: 048
  5. ADALIMUMAB [Suspect]
     Active Substance: ADALIMUMAB
     Indication: COLITIS ULCERATIVE
     Route: 065
  6. EPINEPHRINE. [Suspect]
     Active Substance: EPINEPHRINE
     Indication: ANGIOEDEMA
     Route: 065
  7. METHYLPREDNISOLONE. [Suspect]
     Active Substance: METHYLPREDNISOLONE
     Indication: ANGIOEDEMA
     Route: 042

REACTIONS (3)
  - Angioedema [Recovered/Resolved]
  - Respiratory distress [Recovered/Resolved]
  - Drug ineffective [Unknown]
